FAERS Safety Report 23363661 (Version 1)
Quarter: 2024Q1

REPORT INFORMATION
  Report Type: Spontaneous
  Country: FR (occurrence: FR)
  Receive Date: 20240103
  Receipt Date: 20240103
  Transmission Date: 20240410
  Serious: Yes (Hospitalization)
  Sender: FDA-Public Use
  Company Number: None

PATIENT
  Age: 69 Year
  Sex: Female

DRUGS (10)
  1. CYCLOPHOSPHAMIDE [Suspect]
     Active Substance: CYCLOPHOSPHAMIDE
     Indication: Bone marrow conditioning regimen
     Dosage: 2150 MG
     Route: 042
     Dates: start: 20230729, end: 20230802
  2. CYCLOPHOSPHAMIDE [Suspect]
     Active Substance: CYCLOPHOSPHAMIDE
     Dosage: 2150 MG
     Route: 042
     Dates: start: 20230807, end: 20230808
  3. FLUDARABINE PHOSPHATE [Suspect]
     Active Substance: FLUDARABINE PHOSPHATE
     Indication: Bone marrow conditioning regimen
     Dosage: 39.5 MG
     Route: 042
     Dates: start: 20230729, end: 20230802
  4. CELLCEPT [Concomitant]
     Active Substance: MYCOPHENOLATE MOFETIL
     Indication: Prophylaxis against transplant rejection
     Dosage: 1000.000MG QD
     Route: 042
     Dates: start: 20230809
  5. EMEND [Concomitant]
     Active Substance: APREPITANT
     Indication: Prophylaxis of nausea and vomiting
     Dosage: 125.000MG
     Route: 042
     Dates: start: 20230729, end: 20230808
  6. PIPERACILLIN SODIUM\TAZOBACTAM SODIUM [Concomitant]
     Active Substance: PIPERACILLIN SODIUM\TAZOBACTAM SODIUM
     Indication: Klebsiella infection
     Dosage: 4.000G QD
     Route: 042
     Dates: start: 20230808, end: 20230815
  7. CYCLOSPORINE [Concomitant]
     Active Substance: CYCLOSPORINE
     Indication: Prophylaxis against transplant rejection
     Dosage: 160.000MG QD
     Route: 042
     Dates: start: 20230809, end: 20230818
  8. FLUCONAZOLE [Concomitant]
     Active Substance: FLUCONAZOLE
     Indication: Fungal infection
     Dosage: 400.000MG QD
     Route: 042
     Dates: start: 20230809, end: 20230815
  9. MESNA [Concomitant]
     Active Substance: MESNA
     Indication: Drug toxicity prophylaxis
     Dosage: 215.000MG
     Route: 042
     Dates: start: 20230729, end: 20230808
  10. ONDANSETRON [Concomitant]
     Active Substance: ONDANSETRON
     Indication: Prophylaxis of nausea and vomiting
     Dosage: 8.000MG
     Route: 042
     Dates: start: 20230729, end: 20230808

REACTIONS (1)
  - Ventricular dysfunction [Recovered/Resolved]

NARRATIVE: CASE EVENT DATE: 20230815
